FAERS Safety Report 9057540 (Version 1)
Quarter: 2013Q1

REPORT INFORMATION
  Report Type: Spontaneous
  Country: US (occurrence: None)
  Receive Date: 20130204
  Receipt Date: 20130204
  Transmission Date: 20140127
  Serious: No
  Sender: FDA-Public Use
  Company Number: None

PATIENT
  Age: 26 Year
  Sex: Male
  Weight: 72.58 kg

DRUGS (1)
  1. PENICILLIN VK [Suspect]
     Indication: PHARYNGITIS STREPTOCOCCAL
     Route: 048
     Dates: start: 20130125, end: 20130204

REACTIONS (3)
  - Insomnia [None]
  - Anxiety [None]
  - No therapeutic response [None]
